FAERS Safety Report 6359356-5 (Version None)
Quarter: 2009Q3

REPORT INFORMATION
  Report Type: 
  Country: None (occurrence: None)
  Receive Date: 20090917
  Receipt Date: 20090903
  Transmission Date: 20100115
  Serious: Yes (Other)
  Sender: FDA-Public Use
  Company Number: US-PURDUE-USA-2007-0029505

PATIENT
  Sex: Male

DRUGS (9)
  1. OXYCONTIN [Suspect]
     Indication: PAIN
     Dosage: 20 MG, SEE TEXT
     Route: 048
     Dates: start: 20020612
  2. OXYCONTIN [Suspect]
     Indication: MUSCULOSKELETAL PAIN
     Dosage: 20 MG, TID
  3. FELODIPINE [Concomitant]
     Dosage: 5 UNK, UNK
  4. LISINOPRIL AND HYDROCHLOROTHIAZIDE [Concomitant]
     Dosage: 20 UNK, UNK
  5. PSEUDOEPHEDRINE HCL [Concomitant]
     Dosage: 120 UNK, UNK
  6. RANITIDINE [Concomitant]
     Dosage: 150 MG, UNK
  7. SILDENAFIL CITRATE [Concomitant]
     Dosage: 100 UNK, UNK
  8. SIMVASTATIN [Concomitant]
     Dosage: 40 UNK, UNK
  9. SODIUM CHLORIDE [Concomitant]

REACTIONS (33)
  - ACCIDENT [None]
  - ACTIVITIES OF DAILY LIVING IMPAIRED [None]
  - AFFECTIVE DISORDER [None]
  - AGITATION [None]
  - ANGER [None]
  - ANHEDONIA [None]
  - ANXIETY [None]
  - ASTHENIA [None]
  - BACK PAIN [None]
  - BREAKTHROUGH PAIN [None]
  - DEPRESSION [None]
  - DEPRESSIVE SYMPTOM [None]
  - DISTURBANCE IN ATTENTION [None]
  - DRUG DEPENDENCE [None]
  - DRUG INEFFECTIVE [None]
  - DRUG TOLERANCE [None]
  - DRUG WITHDRAWAL SYNDROME [None]
  - EMOTIONAL DISORDER [None]
  - EMOTIONAL DISTRESS [None]
  - FEELING JITTERY [None]
  - FRUSTRATION [None]
  - HEADACHE [None]
  - INADEQUATE ANALGESIA [None]
  - INJURY [None]
  - IRRITABILITY [None]
  - MALAISE [None]
  - MUSCULOSKELETAL DISORDER [None]
  - NERVOUS SYSTEM DISORDER [None]
  - PAIN [None]
  - POST-TRAUMATIC STRESS DISORDER [None]
  - SEXUAL DYSFUNCTION [None]
  - SLEEP APNOEA SYNDROME [None]
  - SLEEP DISORDER [None]
